FAERS Safety Report 13672428 (Version 1)
Quarter: 2017Q2

REPORT INFORMATION
  Report Type: Spontaneous
  Country: CH (occurrence: CH)
  Receive Date: 20170620
  Receipt Date: 20170620
  Transmission Date: 20170830
  Serious: Yes (Hospitalization, Other)
  Sender: FDA-Public Use
  Company Number: CH-AMGEN-CHESP2017090697

PATIENT
  Age: 80 Year
  Sex: Female
  Weight: 53 kg

DRUGS (2)
  1. CALCIMAGON [Concomitant]
     Active Substance: CALCIUM
     Indication: OSTEOPOROSIS
     Dosage: UNK
     Route: 048
     Dates: start: 20170201, end: 20170301
  2. PROLIA [Suspect]
     Active Substance: DENOSUMAB
     Indication: OSTEOPOROSIS
     Dosage: 60 MG, Q6MO
     Route: 058
     Dates: start: 20120201, end: 20150901

REACTIONS (4)
  - Rebound effect [Recovering/Resolving]
  - Lumbar vertebral fracture [Recovering/Resolving]
  - Thoracic vertebral fracture [Recovering/Resolving]
  - Bone density decreased [Recovering/Resolving]

NARRATIVE: CASE EVENT DATE: 2016
